FAERS Safety Report 15756911 (Version 1)
Quarter: 2018Q4

REPORT INFORMATION
  Report Type: Spontaneous
  Country: CN (occurrence: CN)
  Receive Date: 20181224
  Receipt Date: 20181224
  Transmission Date: 20190205
  Serious: Yes (Other)
  Sender: FDA-Public Use
  Company Number: CN-ASTRAZENECA-2018SF68918

PATIENT
  Age: 67 Year
  Sex: Female

DRUGS (23)
  1. METHYLPREDNISOLONE. [Concomitant]
     Active Substance: METHYLPREDNISOLONE
     Indication: PEMPHIGUS
     Dosage: 16 MG/D IN 2 TIMES
  2. ATORVASTATIN CALCIUM. [Concomitant]
     Active Substance: ATORVASTATIN CALCIUM
     Indication: HYPERLIPIDAEMIA
  3. VORICONAZOLE. [Interacting]
     Active Substance: VORICONAZOLE
     Indication: ASPERGILLUS INFECTION
     Route: 065
  4. METHYLPREDNISOLONE. [Concomitant]
     Active Substance: METHYLPREDNISOLONE
     Indication: PEMPHIGUS
  5. METFORMIN [Concomitant]
     Active Substance: METFORMIN HYDROCHLORIDE
     Indication: PEMPHIGUS
     Route: 048
  6. CALCITRIOL. [Concomitant]
     Active Substance: CALCITRIOL
     Indication: OSTEOPOROSIS
  7. CALCIUM CARBONATE D3 [Concomitant]
     Indication: OSTEOPOROSIS
  8. FLUCONAZOLE. [Concomitant]
     Active Substance: FLUCONAZOLE
     Indication: INFECTION
  9. VANCOMYCIN [Concomitant]
     Active Substance: VANCOMYCIN
  10. METHYLPREDNISOLONE. [Concomitant]
     Active Substance: METHYLPREDNISOLONE
     Indication: PEMPHIGUS
     Dosage: 64 MG/D IN 4 TIMES FOR 6 WEEKS
  11. GLYCYRRHIZIN [Concomitant]
     Active Substance: GLYCYRRHIZIN
     Indication: ABDOMINAL DISCOMFORT
     Dosage: POWDER INJECTION 120 MG DAILY
  12. MEROPENEM. [Concomitant]
     Active Substance: MEROPENEM
  13. OMEPRAZOLE. [Interacting]
     Active Substance: OMEPRAZOLE
     Indication: ABDOMINAL DISCOMFORT
     Route: 042
  14. METHYLPREDNISOLONE. [Concomitant]
     Active Substance: METHYLPREDNISOLONE
     Indication: PEMPHIGUS
  15. CEFTAZIDIME. [Concomitant]
     Active Substance: CEFTAZIDIME
  16. OMEPRAZOLE. [Suspect]
     Active Substance: OMEPRAZOLE
     Indication: HYPERCHLORHYDRIA
     Route: 048
  17. PAZUFLOXACIN [Concomitant]
     Active Substance: PAZUFLOXACIN
  18. ACARBOSE. [Concomitant]
     Active Substance: ACARBOSE
     Indication: PEMPHIGUS
  19. AMBROXOL [Concomitant]
     Active Substance: AMBROXOL
     Indication: PRODUCTIVE COUGH
  20. POLYENE PHOSPHATIDYLCHOLINE [Concomitant]
     Active Substance: PHOSPHOLIPID
     Indication: LIVER DISORDER
  21. LEVOFLOXACIN. [Concomitant]
     Active Substance: LEVOFLOXACIN
     Indication: INFECTION
  22. METHYLPREDNISOLONE. [Concomitant]
     Active Substance: METHYLPREDNISOLONE
     Indication: PEMPHIGUS
     Dosage: 24 MG/D IN 3 TIMES FOR 4 MONTHS
  23. ALENDRONATE D3 [Concomitant]
     Indication: OSTEOPOROSIS
     Dosage: 70 MG QW

REACTIONS (2)
  - Drug interaction [Unknown]
  - Drug-induced liver injury [Recovered/Resolved]
